FAERS Safety Report 6088960-7 (Version None)
Quarter: 2009Q1

REPORT INFORMATION
  Report Type: 
  Country: None (occurrence: None)
  Receive Date: 20090218
  Receipt Date: 20090218
  Transmission Date: 20090719
  Serious: Yes (Other)
  Sender: FDA-Public Use
  Company Number: None

PATIENT
  Age: 57 Year
  Sex: Female
  Weight: 62.1428 kg

DRUGS (1)
  1. AZITHROMYCIN [Suspect]
     Indication: BACTERIAL INFECTION
     Dosage: 500 MG FIRST DAY  (STOPPED IT FIRST NIGHT..)
     Dates: start: 20090211, end: 20090211

REACTIONS (3)
  - ABDOMINAL PAIN [None]
  - DIARRHOEA [None]
  - HAEMATOCHEZIA [None]
